FAERS Safety Report 5380296-2 (Version None)
Quarter: 2007Q3

REPORT INFORMATION
  Report Type: 
  Country: None (occurrence: None)
  Receive Date: 20070706
  Receipt Date: 20070627
  Transmission Date: 20080115
  Serious: Yes (Other)
  Sender: FDA-Public Use
  Company Number: DE-ROCHE-504880

PATIENT

DRUGS (1)
  1. ROFERON-A [Suspect]
     Indication: MALIGNANT MELANOMA
     Route: 065
     Dates: end: 20070301

REACTIONS (1)
  - LIPASE INCREASED [None]
